FAERS Safety Report 19029768 (Version 2)
Quarter: 2021Q1

REPORT INFORMATION
  Report Type: Spontaneous
  Country: CA (occurrence: CA)
  Receive Date: 20210318
  Receipt Date: 20210330
  Transmission Date: 20210420
  Serious: Yes (Hospitalization, Other)
  Sender: FDA-Public Use
  Company Number: CA-BAXTER-2021BAX005408

PATIENT
  Age: 38 Year
  Sex: Female
  Weight: 60 kg

DRUGS (3)
  1. PROCYTOX (CYCLOPHOSPHAMIDE) 2000MG/VIAL [Suspect]
     Active Substance: CYCLOPHOSPHAMIDE
     Indication: BREAST CANCER
     Dosage: ADJUVANT; CYCLICAL; EVERY 21 DAYS; CYCLICAL, 4 CYCLE
     Route: 041
     Dates: start: 20190405, end: 20190830
  2. DOXIL [Suspect]
     Active Substance: DOXORUBICIN HYDROCHLORIDE
     Indication: BREAST CANCER
     Dosage: ADJUVANT; CYCLICAL; EVERY 21 DAYS; CYCLICAL
     Route: 042
     Dates: start: 20190405, end: 20190830
  3. PACLITAXEL. [Suspect]
     Active Substance: PACLITAXEL
     Indication: BREAST CANCER
     Dosage: ADJUVANT; CYCLICAL, ONCE WEEKLY X12 WEEKS; CYCLICAL, 2 CYCLE
     Route: 041
     Dates: start: 20190405, end: 20190830

REACTIONS (6)
  - Hyperferritinaemia [Recovered/Resolved]
  - Transaminases increased [Recovered/Resolved]
  - Cytopenia [Recovered/Resolved]
  - Lymphadenitis [Recovered/Resolved]
  - Hypotension [Unknown]
  - Haemophagocytic lymphohistiocytosis [Recovered/Resolved]

NARRATIVE: CASE EVENT DATE: 20200807
